FAERS Safety Report 5319460-7 (Version None)
Quarter: 2007Q2

REPORT INFORMATION
  Report Type: 
  Country: None (occurrence: None)
  Receive Date: 20070508
  Receipt Date: 20070427
  Transmission Date: 20071010
  Serious: Yes (Other)
  Sender: FDA-Public Use
  Company Number: JP-PFIZER INC-2007028526

PATIENT
  Age: 34 Year
  Sex: Female

DRUGS (6)
  1. DETRUSITOL LA [Suspect]
     Dosage: DAILY DOSE:4MG
     Route: 048
     Dates: start: 20070328, end: 20070301
  2. TAKEPRON [Concomitant]
     Route: 048
  3. TALION [Concomitant]
     Route: 048
  4. MONTELUKAST SODIUM [Concomitant]
  5. THEO-DUR [Concomitant]
     Route: 048
  6. PREMARIN [Concomitant]

REACTIONS (4)
  - DRY MOUTH [None]
  - STRESS [None]
  - URTICARIA [None]
  - VIRAL INFECTION [None]
